FAERS Safety Report 11716467 (Version 1)
Quarter: 2015Q4

REPORT INFORMATION
  Report Type: Report from Study
  Country: US (occurrence: US)
  Receive Date: 20151109
  Receipt Date: 20151109
  Transmission Date: 20160304
  Serious: Yes (Other)
  Sender: FDA-Public Use
  Company Number: US-BAXALTA-2015BLT002611

PATIENT
  Sex: Male

DRUGS (1)
  1. GAMMAGARD LIQUID [Suspect]
     Active Substance: HUMAN IMMUNOGLOBULIN G
     Indication: PRIMARY IMMUNODEFICIENCY SYNDROME
     Route: 058

REACTIONS (5)
  - Lung disorder [Unknown]
  - Drug dose omission [Unknown]
  - Pneumonia [Unknown]
  - Productive cough [Unknown]
  - Malaise [Unknown]
